FAERS Safety Report 23113627 (Version 1)
Quarter: 2023Q4

REPORT INFORMATION
  Report Type: Spontaneous
  Country: US (occurrence: US)
  Receive Date: 20231027
  Receipt Date: 20231027
  Transmission Date: 20240109
  Serious: Yes (Other)
  Sender: FDA-Public Use
  Company Number: US-TAKEDA-2023TUS103937

PATIENT
  Age: 46 Year
  Sex: Female

DRUGS (2)
  1. VONVENDI [Suspect]
     Active Substance: VON WILLEBRAND FACTOR (RECOMBINANT)
     Indication: Von Willebrand^s disease
     Dosage: 5200 INTERNATIONAL UNIT, 2/WEEK
     Route: 042
     Dates: start: 2021
  2. ADVATE [Concomitant]
     Active Substance: ANTIHEMOPHILIC FACTOR, HUMAN RECOMBINANT
     Indication: Von Willebrand^s disease
     Dosage: UNK
     Route: 065
     Dates: start: 2021, end: 202306

REACTIONS (1)
  - Splenic artery aneurysm [Not Recovered/Not Resolved]

NARRATIVE: CASE EVENT DATE: 20230801
